FAERS Safety Report 4337011-0 (Version None)
Quarter: 2004Q1

REPORT INFORMATION
  Report Type: 
  Country: None (occurrence: None)
  Receive Date: 20040329
  Receipt Date: 20040119
  Transmission Date: 20041129
  Serious: No
  Sender: FDA-Public Use
  Company Number: USA040156924

PATIENT
  Age: 7 Year
  Sex: Male
  Weight: 39 kg

DRUGS (1)
  1. STRATTERA [Suspect]
     Indication: ATTENTION DEFICIT/HYPERACTIVITY DISORDER
     Dosage: 40 MG/DAY
     Dates: start: 20031101

REACTIONS (7)
  - DYSPEPSIA [None]
  - EMOTIONAL DISORDER [None]
  - FEELING ABNORMAL [None]
  - GASTROENTERITIS [None]
  - MOOD SWINGS [None]
  - VOMITING [None]
  - WEIGHT DECREASED [None]
